FAERS Safety Report 18181588 (Version 1)
Quarter: 2020Q3

REPORT INFORMATION
  Report Type: Spontaneous
  Country: ES (occurrence: ES)
  Receive Date: 20200821
  Receipt Date: 20200821
  Transmission Date: 20201105
  Serious: Yes (Hospitalization)
  Sender: FDA-Public Use
  Company Number: ES-CELGENEUS-ESP-20200804414

PATIENT
  Age: 61 Year
  Sex: Female
  Weight: 49 kg

DRUGS (24)
  1. OMEPRAZOLE. [Concomitant]
     Active Substance: OMEPRAZOLE
     Indication: PROPHYLAXIS
     Route: 048
  2. FENTANYL. [Concomitant]
     Active Substance: FENTANYL
     Indication: PAIN
     Route: 062
     Dates: end: 20190520
  3. ABRAXANE [Suspect]
     Active Substance: PACLITAXEL
     Route: 041
     Dates: start: 20190712, end: 20190712
  4. OLECLUMAB. [Suspect]
     Active Substance: OLECLUMAB
     Route: 041
     Dates: start: 20190705, end: 20190705
  5. GEMCITABINE. [Suspect]
     Active Substance: GEMCITABINE
     Route: 041
     Dates: start: 20190607, end: 20190607
  6. GEMCITABINE. [Suspect]
     Active Substance: GEMCITABINE
     Route: 041
     Dates: start: 20190712, end: 20190712
  7. METAMIZOL [Concomitant]
     Active Substance: METAMIZOLE SODIUM
     Indication: PAIN
     Dosage: 1725 MILLIGRAM
     Route: 048
     Dates: end: 20190512
  8. OLECLUMAB. [Suspect]
     Active Substance: OLECLUMAB
     Indication: ADENOCARCINOMA PANCREAS
     Route: 041
     Dates: start: 20190510, end: 20190510
  9. OLECLUMAB. [Suspect]
     Active Substance: OLECLUMAB
     Route: 041
     Dates: start: 20190524, end: 20190524
  10. OLECLUMAB. [Suspect]
     Active Substance: OLECLUMAB
     Route: 041
     Dates: start: 20190607, end: 20190607
  11. DURVALUMAB. [Suspect]
     Active Substance: DURVALUMAB
     Route: 041
     Dates: start: 20190705, end: 20190705
  12. ABRAXANE [Suspect]
     Active Substance: PACLITAXEL
     Indication: ADENOCARCINOMA PANCREAS
     Route: 041
     Dates: start: 20190510, end: 20190510
  13. GEMCITABINE. [Suspect]
     Active Substance: GEMCITABINE
     Route: 041
     Dates: start: 20190705, end: 20190705
  14. DURVALUMAB. [Suspect]
     Active Substance: DURVALUMAB
     Indication: ADENOCARCINOMA PANCREAS
     Route: 041
     Dates: start: 20190510, end: 20190510
  15. DURVALUMAB. [Suspect]
     Active Substance: DURVALUMAB
     Route: 041
     Dates: start: 20190607, end: 20190607
  16. SERTRALINE [Concomitant]
     Active Substance: SERTRALINE HYDROCHLORIDE
     Indication: PAIN
     Route: 048
  17. ABRAXANE [Suspect]
     Active Substance: PACLITAXEL
     Route: 041
     Dates: start: 20190524, end: 20190524
  18. ABRAXANE [Suspect]
     Active Substance: PACLITAXEL
     Route: 041
     Dates: start: 20190607, end: 20190607
  19. ABRAXANE [Suspect]
     Active Substance: PACLITAXEL
     Route: 041
     Dates: start: 20190705, end: 20190705
  20. GEMCITABINE. [Suspect]
     Active Substance: GEMCITABINE
     Indication: ADENOCARCINOMA PANCREAS
     Route: 041
     Dates: start: 20190510, end: 20190510
  21. GEMCITABINE. [Suspect]
     Active Substance: GEMCITABINE
     Route: 041
     Dates: start: 20190614, end: 20190614
  22. GEMCITABINE. [Suspect]
     Active Substance: GEMCITABINE
     Route: 041
     Dates: start: 20190524, end: 20190524
  23. PARACETAMOL [Concomitant]
     Active Substance: ACETAMINOPHEN
     Indication: PAIN
     Dosage: 1 CAPSULE 3 TIMES PER DAY
     Route: 065
     Dates: end: 20190512
  24. METOCLOPRAMIDE. [Concomitant]
     Active Substance: METOCLOPRAMIDE
     Indication: PROPHYLAXIS
     Route: 048

REACTIONS (1)
  - Abdominal pain [Recovered/Resolved]

NARRATIVE: CASE EVENT DATE: 20190513
